FAERS Safety Report 19431096 (Version 2)
Quarter: 2022Q3

REPORT INFORMATION
  Report Type: Spontaneous
  Country: US (occurrence: None)
  Receive Date: 20210618
  Receipt Date: 20220701
  Transmission Date: 20221026
  Serious: No
  Sender: FDA-Public Use
  Company Number: US-ROCHE-2743841

PATIENT
  Sex: Female
  Weight: 65.8 kg

DRUGS (1)
  1. ACTEMRA [Suspect]
     Active Substance: TOCILIZUMAB
     Indication: Giant cell arteritis
     Route: 058

REACTIONS (3)
  - Product administration error [Unknown]
  - Feeling hot [Unknown]
  - Off label use [Unknown]
